FAERS Safety Report 4381908-2 (Version None)
Quarter: 2004Q2

REPORT INFORMATION
  Report Type: 
  Country: None (occurrence: None)
  Receive Date: 20040615
  Receipt Date: 20040601
  Transmission Date: 20050107
  Serious: Yes (Disabling)
  Sender: FDA-Public Use
  Company Number: 2004213918DE

PATIENT
  Age: 53 Year
  Sex: Female
  Weight: 75 kg

DRUGS (3)
  1. FARMORUBICIN        (EPIRUBICIN HYDROCHLORIDE) [Suspect]
     Indication: BREAST CANCER
     Dosage: 60 MG/M2, CYCLIC, IV
     Route: 042
     Dates: start: 20031208, end: 20040316
  2. CYCLOPHOSPHAMIDE [Concomitant]
  3. ZOFRAN [Concomitant]

REACTIONS (1)
  - ALVEOLITIS FIBROSING [None]
